FAERS Safety Report 8483743-2 (Version None)
Quarter: 2012Q3

REPORT INFORMATION
  Report Type: 
  Country: None (occurrence: None)
  Receive Date: 20120703
  Receipt Date: 20120626
  Transmission Date: 20120928
  Serious: Yes (Hospitalization)
  Sender: FDA-Public Use
  Company Number: US-BIOGENIDEC-2010BI037407

PATIENT
  Sex: Female

DRUGS (1)
  1. AVONEX [Suspect]
     Indication: MULTIPLE SCLEROSIS
     Route: 030
     Dates: start: 19971201

REACTIONS (6)
  - INTERVERTEBRAL DISC INJURY [None]
  - LIMB ASYMMETRY [None]
  - OPTIC NEURITIS [None]
  - LOSS OF CONTROL OF LEGS [None]
  - CYST [None]
  - MOBILITY DECREASED [None]
